FAERS Safety Report 21790010 (Version 1)
Quarter: 2022Q4

REPORT INFORMATION
  Report Type: Spontaneous
  Country: US (occurrence: US)
  Receive Date: 20221228
  Receipt Date: 20221228
  Transmission Date: 20230113
  Serious: No
  Sender: FDA-Public Use
  Company Number: US-ABBVIE-4218118

PATIENT
  Age: 54 Year
  Sex: Female
  Weight: 63 kg

DRUGS (3)
  1. HUMIRA [Suspect]
     Active Substance: ADALIMUMAB
     Indication: Psoriatic arthropathy
     Route: 058
     Dates: start: 202207, end: 202210
  2. HUMIRA [Suspect]
     Active Substance: ADALIMUMAB
     Dosage: SKIN INJURY CESSATION DATE NOV 2022
     Route: 058
     Dates: start: 2021, end: 202207
  3. HUMIRA [Suspect]
     Active Substance: ADALIMUMAB
     Route: 058
     Dates: start: 202210

REACTIONS (9)
  - Skin injury [Recovered/Resolved]
  - Pain [Not Recovered/Not Resolved]
  - Haemorrhage [Recovered/Resolved]
  - Wrong technique in product usage process [Not Recovered/Not Resolved]
  - Pain [Not Recovered/Not Resolved]
  - Pain [Recovered/Resolved]
  - Injection site haemorrhage [Recovered/Resolved]
  - Incorrect dose administered [Not Recovered/Not Resolved]
  - Injury associated with device [Not Recovered/Not Resolved]

NARRATIVE: CASE EVENT DATE: 20220701
